FAERS Safety Report 16091282 (Version 1)
Quarter: 2019Q1

REPORT INFORMATION
  Report Type: Spontaneous
  Country: CA (occurrence: CA)
  Receive Date: 20190319
  Receipt Date: 20190319
  Transmission Date: 20190418
  Serious: Yes (Other)
  Sender: FDA-Public Use
  Company Number: CA-MYLANLABS-2019M1024787

PATIENT
  Age: 94 Year
  Sex: Male

DRUGS (1)
  1. MYLAN-NITRO PATCH 0.4 [Suspect]
     Active Substance: NITROGLYCERIN
     Indication: ANGINA PECTORIS
     Dosage: 0.4 MILLIGRAM, BID (2 EVERY 1 DAY)
     Route: 062

REACTIONS (5)
  - Application site erythema [Unknown]
  - Application site rash [Unknown]
  - Pruritus [Unknown]
  - Pain [Unknown]
  - Rash papular [Unknown]
